FAERS Safety Report 20488947 (Version 1)
Quarter: 2022Q1

REPORT INFORMATION
  Report Type: Report from Study
  Country: US (occurrence: None)
  Receive Date: 20220218
  Receipt Date: 20220218
  Transmission Date: 20220423
  Serious: Yes (Other)
  Sender: FDA-Public Use
  Company Number: 2022A074406

PATIENT
  Sex: Male

DRUGS (8)
  1. FASENRA [Suspect]
     Active Substance: BENRALIZUMAB
     Indication: Asthma
     Dosage: 30MG/ML EVERY EIGHT WEEKS
     Route: 058
  2. ACCOLATE [Concomitant]
     Active Substance: ZAFIRLUKAST
     Route: 065
  3. ALBUTEROL SU [Concomitant]
     Dosage: 108
     Route: 065
  4. COZAAR [Concomitant]
     Active Substance: LOSARTAN POTASSIUM
     Route: 065
  5. FLOVENT [Concomitant]
     Active Substance: FLUTICASONE PROPIONATE
     Dosage: 250MCG/B
     Route: 065
  6. LIPITOR [Concomitant]
     Active Substance: ATORVASTATIN CALCIUM
     Route: 065
  7. PLAVIX [Concomitant]
     Active Substance: CLOPIDOGREL BISULFATE
     Route: 065
  8. SEREVENT DISKUS [Concomitant]
     Active Substance: SALMETEROL XINAFOATE
     Dosage: 50MCG/DO
     Route: 065

REACTIONS (2)
  - COVID-19 [Not Recovered/Not Resolved]
  - Somnolence [Not Recovered/Not Resolved]
